FAERS Safety Report 22212207 (Version 3)
Quarter: 2023Q2

REPORT INFORMATION
  Report Type: Report from Study
  Country: US (occurrence: US)
  Receive Date: 20230414
  Receipt Date: 20230505
  Transmission Date: 20230721
  Serious: No
  Sender: FDA-Public Use
  Company Number: US-BIOVITRUM-2023-US-007660

PATIENT
  Age: 83 Year
  Sex: Female

DRUGS (11)
  1. DOPTELET [Suspect]
     Active Substance: AVATROMBOPAG MALEATE
     Indication: Immune thrombocytopenia
     Dosage: 2 DAILY (BID)
     Route: 048
     Dates: start: 20230313
  2. DOPTELET [Suspect]
     Active Substance: AVATROMBOPAG MALEATE
     Dosage: 2 DAILY (BID)
     Route: 048
     Dates: start: 20230308
  3. DOPTELET [Suspect]
     Active Substance: AVATROMBOPAG MALEATE
     Dosage: EVERY OTHER DAY ON MONDAY, WEDNESDAY AND FRIDAY, SKIP SATURDAY AND SUNDAY
  4. FERROUS GLUCONATE [Concomitant]
     Active Substance: FERROUS GLUCONATE
     Indication: Product used for unknown indication
  5. ALIGN [Concomitant]
     Active Substance: BIFIDOBACTERIUM LONGUM SUBSP. INFANTIS
     Indication: Product used for unknown indication
  6. MAGNESIUM [Concomitant]
     Active Substance: MAGNESIUM
     Indication: Product used for unknown indication
  7. ATENOLOL [Concomitant]
     Active Substance: ATENOLOL
     Indication: Product used for unknown indication
  8. FLECAINIDE [Concomitant]
     Active Substance: FLECAINIDE
     Indication: Product used for unknown indication
  9. OMEPRAZOLE [Concomitant]
     Active Substance: OMEPRAZOLE
     Indication: Product used for unknown indication
  10. AMLODIPINE [Concomitant]
     Active Substance: AMLODIPINE BESYLATE
     Indication: Product used for unknown indication
  11. ZOLPIDEM [Concomitant]
     Active Substance: ZOLPIDEM TARTRATE
     Indication: Product used for unknown indication

REACTIONS (10)
  - Headache [Unknown]
  - Musculoskeletal pain [Unknown]
  - Chills [Unknown]
  - Arthralgia [Unknown]
  - Dizziness [Unknown]
  - Rhinorrhoea [Unknown]
  - Toothache [Unknown]
  - Heart rate irregular [Unknown]
  - Gastrooesophageal reflux disease [Unknown]
  - Platelet count abnormal [Unknown]
